FAERS Safety Report 5145226-7 (Version None)
Quarter: 2006Q4

REPORT INFORMATION
  Report Type: 
  Country: None (occurrence: None)
  Receive Date: 20061031
  Receipt Date: 20061018
  Transmission Date: 20070319
  Serious: Yes (Other)
  Sender: FDA-Public Use
  Company Number: 231581

PATIENT
  Age: 53 Year
  Sex: Female
  Weight: 79.8 kg

DRUGS (1)
  1. RITUXAN [Suspect]
     Indication: RHEUMATOID ARTHRITIS
     Dates: start: 20060920

REACTIONS (1)
  - ANAPHYLACTIC SHOCK [None]
